FAERS Safety Report 8150642-5 (Version None)
Quarter: 2012Q1

REPORT INFORMATION
  Report Type: 
  Country: None (occurrence: None)
  Receive Date: 20120220
  Receipt Date: 20120215
  Transmission Date: 20120608
  Serious: Yes (Death)
  Sender: FDA-Public Use
  Company Number: US-BAYER-2011-122408

PATIENT
  Age: 57 Year
  Sex: Male

DRUGS (3)
  1. LASIX [Concomitant]
     Dosage: 20 MG, UNK
  2. NEXAVAR [Suspect]
     Indication: HEPATIC NEOPLASM MALIGNANT
     Dosage: UNK
     Dates: start: 20111108
  3. NORCO [Concomitant]

REACTIONS (1)
  - DEATH [None]
